FAERS Safety Report 17989606 (Version 2)
Quarter: 2021Q1

REPORT INFORMATION
  Report Type: Spontaneous
  Country: FR (occurrence: FR)
  Receive Date: 20200707
  Receipt Date: 20210120
  Transmission Date: 20210419
  Serious: Yes (Other)
  Sender: FDA-Public Use
  Company Number: FR-BAUSCH-BL-2020-018574

PATIENT
  Age: 18 Year
  Sex: Female

DRUGS (19)
  1. METHOTREXATE. [Suspect]
     Active Substance: METHOTREXATE
     Dosage: ON DAY 65 AND 72
     Route: 037
     Dates: start: 2014
  2. CYTOSINE ARABINOSIDE/CYTARABINE [Suspect]
     Active Substance: CYTARABINE HYDROCHLORIDE
     Indication: ACUTE LYMPHOCYTIC LEUKAEMIA
     Dosage: DAY 37 ? 51
     Route: 037
     Dates: start: 2013, end: 2013
  3. 6?MERCAPTOPURINE [Suspect]
     Active Substance: MERCAPTOPURINE
     Indication: ACUTE LYMPHOCYTIC LEUKAEMIA
     Dosage: DAY 72? 79
     Route: 065
     Dates: start: 2014, end: 2014
  4. PREDNISOLONE. [Suspect]
     Active Substance: PREDNISOLONE
     Indication: PSORIATIC ARTHROPATHY
     Dosage: REINTRODUCED ON DAYS 37 AND 45, RESPECTIVELY
     Route: 048
     Dates: start: 2013
  5. DOXYCYCLINE. [Suspect]
     Active Substance: DOXYCYCLINE
     Indication: UREAPLASMA INFECTION
     Route: 065
     Dates: start: 2014, end: 2014
  6. VINCRISTINE [Suspect]
     Active Substance: VINCRISTINE
     Indication: ACUTE LYMPHOCYTIC LEUKAEMIA
     Dosage: FRALLE 2000B TRIAL
     Route: 065
     Dates: start: 2013
  7. DAUNORUBICIN [Suspect]
     Active Substance: DAUNORUBICIN
     Indication: ACUTE LYMPHOCYTIC LEUKAEMIA
     Dosage: FRALLE 2000B TRIAL
     Route: 065
     Dates: start: 2013
  8. L?ASPARAGINASE [Suspect]
     Active Substance: ASPARAGINASE
     Indication: ACUTE LYMPHOCYTIC LEUKAEMIA
     Dosage: FRALLE 2000B TRIAL
     Route: 065
     Dates: start: 2013
  9. PREDNISOLONE. [Suspect]
     Active Substance: PREDNISOLONE
     Route: 048
     Dates: start: 201312
  10. PIPERACILLIN ? TAZOBACTAM [Concomitant]
     Active Substance: PIPERACILLIN SODIUM\TAZOBACTAM SODIUM
     Indication: ANTIBIOTIC PROPHYLAXIS
  11. KETOPROFEN. [Concomitant]
     Active Substance: KETOPROFEN
     Indication: PSORIATIC ARTHROPATHY
     Dosage: FROM DAY 44 TO 58
     Dates: start: 2013, end: 201312
  12. PREDNISOLONE. [Suspect]
     Active Substance: PREDNISOLONE
     Indication: ACUTE LYMPHOCYTIC LEUKAEMIA
     Dosage: CORTICOSTEROID WAS WITHDRAWAL; FRALLE 2000B TRIAL
     Route: 048
     Dates: start: 2013, end: 2013
  13. PREDNISOLONE. [Suspect]
     Active Substance: PREDNISOLONE
     Route: 048
     Dates: start: 2013
  14. VEPESIDE [Suspect]
     Active Substance: ETOPOSIDE
     Indication: ACUTE LYMPHOCYTIC LEUKAEMIA
     Dosage: DAY 37? 51
     Route: 037
     Dates: start: 2013, end: 2013
  15. 6?THIOGUANINE [Suspect]
     Active Substance: THIOGUANINE ANHYDROUS
     Indication: ACUTE LYMPHOCYTIC LEUKAEMIA
     Dosage: DAY 37? 51
     Route: 065
     Dates: start: 2013, end: 2013
  16. METHOTREXATE. [Suspect]
     Active Substance: METHOTREXATE
     Indication: ACUTE LYMPHOCYTIC LEUKAEMIA
     Dosage: FRALLE 2000B TRIAL
     Route: 037
     Dates: start: 2013
  17. DEPO?MEDROL [Suspect]
     Active Substance: METHYLPREDNISOLONE ACETATE
     Indication: ACUTE LYMPHOCYTIC LEUKAEMIA
     Route: 037
     Dates: start: 2013
  18. PREDNISOLONE. [Suspect]
     Active Substance: PREDNISOLONE
     Dosage: SLOWLY DOSE WAS TAPPERED AND STOPPED ON DAY 79
     Route: 048
     Dates: start: 2014, end: 2014
  19. TOCILIZUMAB. [Concomitant]
     Active Substance: TOCILIZUMAB
     Indication: PAIN
     Dosage: ON DAY 61

REACTIONS (3)
  - Ureaplasma infection [Recovering/Resolving]
  - Therapy non-responder [Unknown]
  - Arthritis bacterial [Recovering/Resolving]

NARRATIVE: CASE EVENT DATE: 2014
